FAERS Safety Report 5853952-7 (Version None)
Quarter: 2008Q3

REPORT INFORMATION
  Report Type: 
  Country: None (occurrence: None)
  Receive Date: 20080822
  Receipt Date: 20080818
  Transmission Date: 20090109
  Serious: Yes (Hospitalization)
  Sender: FDA-Public Use
  Company Number: B0533474A

PATIENT
  Age: 17 Year
  Sex: Female

DRUGS (5)
  1. AUGMENTIN '125' [Suspect]
     Indication: TONSILLITIS
     Route: 048
     Dates: start: 20080503, end: 20080503
  2. AMOXICILLIN [Concomitant]
     Indication: TONSILLITIS
     Route: 065
     Dates: start: 20080401
  3. SOLUPRED [Concomitant]
     Indication: TONSILLITIS
     Dosage: 40MG PER DAY
     Route: 065
     Dates: start: 20080503
  4. IBUPROFENE [Concomitant]
     Indication: TONSILLITIS
     Route: 065
     Dates: start: 20080401
  5. THIOVALONE [Concomitant]
     Indication: TONSILLITIS
     Route: 065
     Dates: start: 20080401

REACTIONS (13)
  - ABDOMINAL PAIN [None]
  - ANAPHYLACTIC SHOCK [None]
  - DIARRHOEA [None]
  - ERYTHEMA [None]
  - FACE OEDEMA [None]
  - HYPERSENSITIVITY [None]
  - MALAISE [None]
  - NAUSEA [None]
  - PALATAL OEDEMA [None]
  - TONSILLAR HYPERTROPHY [None]
  - TRYPTASE INCREASED [None]
  - URTICARIA [None]
  - VOMITING [None]
